FAERS Safety Report 10049810 (Version 2)
Quarter: 2014Q3

REPORT INFORMATION
  Report Type: Report from Study
  Country: CA (occurrence: CA)
  Receive Date: 20140401
  Receipt Date: 20140715
  Transmission Date: 20150326
  Serious: Yes (Death)
  Sender: FDA-Public Use
  Company Number: CA-SA-2014SA039224

PATIENT
  Age: 79 Year
  Sex: Male

DRUGS (12)
  1. ELIGARD [Suspect]
     Active Substance: LEUPROLIDE ACETATE
     Indication: PROSTATE CANCER METASTATIC
     Dosage: FREQUENCY: Q3M
     Route: 065
     Dates: start: 20110125, end: 20131106
  2. ADVAIR HFA [Concomitant]
     Active Substance: FLUTICASONE PROPIONATE\SALMETEROL XINAFOATE
  3. SPIRIVA [Concomitant]
     Active Substance: TIOTROPIUM BROMIDE MONOHYDRATE
  4. CRESTOR [Concomitant]
     Active Substance: ROSUVASTATIN CALCIUM
  5. AVAPRO [Concomitant]
     Active Substance: IRBESARTAN
  6. CALCIUM [Concomitant]
     Active Substance: CALCIUM
  7. DETROL [Concomitant]
     Active Substance: TOLTERODINE TARTRATE
  8. VITAMIN D [Concomitant]
     Active Substance: CHOLECALCIFEROL
  9. WARFARIN [Concomitant]
     Active Substance: WARFARIN
  10. MULTIVITAMINS [Concomitant]
     Active Substance: VITAMINS
  11. DIGOXIN. [Concomitant]
     Active Substance: DIGOXIN
  12. MONOCOR [Concomitant]
     Active Substance: BISOPROLOL FUMARATE

REACTIONS (1)
  - Cardiac death [Fatal]

NARRATIVE: CASE EVENT DATE: 20140206
